FAERS Safety Report 25833498 (Version 2)
Quarter: 2025Q4

REPORT INFORMATION
  Report Type: Spontaneous
  Country: NG (occurrence: NG)
  Receive Date: 20250922
  Receipt Date: 20251027
  Transmission Date: 20260118
  Serious: Yes (Death, Hospitalization)
  Sender: NOVARTIS
  Company Number: NG-002147023-NVSC2025NG147188

PATIENT
  Age: 35 Year
  Sex: Male

DRUGS (1)
  1. GLIVEC [Suspect]
     Active Substance: IMATINIB MESYLATE
     Indication: Chronic myeloid leukaemia
     Dosage: 400 MG (4 X 100MG)
     Route: 065

REACTIONS (4)
  - Death [Fatal]
  - Illness [Unknown]
  - General physical health deterioration [Unknown]
  - Pyrexia [Unknown]

NARRATIVE: CASE EVENT DATE: 20250918
